FAERS Safety Report 10742617 (Version 1)
Quarter: 2015Q1

REPORT INFORMATION
  Report Type: Spontaneous
  Country: US (occurrence: US)
  Receive Date: 20150127
  Receipt Date: 20150127
  Transmission Date: 20150721
  Serious: No
  Sender: FDA-Public Use
  Company Number: US-ELI_LILLY_AND_COMPANY-US201407011812

PATIENT
  Age: 53 Year
  Sex: Female
  Weight: 65.76 kg

DRUGS (1)
  1. HUMALOG [Suspect]
     Active Substance: INSULIN LISPRO
     Indication: PRODUCT USED FOR UNKNOWN INDICATION
     Route: 058

REACTIONS (6)
  - Blood glucose increased [Recovered/Resolved]
  - Infusion site scar [Not Recovered/Not Resolved]
  - Dehydration [Unknown]
  - Injection site pain [Unknown]
  - Lethargy [Unknown]
  - Muscle spasms [Unknown]

NARRATIVE: CASE EVENT DATE: 201404
